FAERS Safety Report 5831108-1 (Version None)
Quarter: 2008Q3

REPORT INFORMATION
  Report Type: 
  Country: None (occurrence: None)
  Receive Date: 20080801
  Receipt Date: 20080408
  Transmission Date: 20090109
  Serious: No
  Sender: FDA-Public Use
  Company Number: US-BRISTOL-MYERS SQUIBB COMPANY-14143770

PATIENT
  Age: 86 Year
  Sex: Male
  Weight: 82 kg

DRUGS (5)
  1. COUMADIN [Suspect]
     Dosage: STOPPED FOR  3 DAYS AND RESTARTED THE NIGHT BEFORE REPORTING.
  2. LEXAPRO [Concomitant]
  3. FLOMAX [Concomitant]
  4. IRON (FERROUS SULFATE) [Concomitant]
     Dosage: IRON INJECTIONS EVERY 2 WEEKS.
  5. MULTI-VITAMIN [Concomitant]

REACTIONS (4)
  - ANAEMIA [None]
  - ASTHENIA [None]
  - INTERNATIONAL NORMALISED RATIO DECREASED [None]
  - PARAESTHESIA [None]
